FAERS Safety Report 9746594 (Version 1)
Quarter: 2013Q4

REPORT INFORMATION
  Report Type: Spontaneous
  Country: US (occurrence: US)
  Receive Date: 20131211
  Receipt Date: 20131211
  Transmission Date: 20140711
  Serious: Yes (Other)
  Sender: FDA-Public Use
  Company Number: US-ROXANE LABORATORIES, INC.-2013-RO-01944RO

PATIENT
  Age: 38 Year
  Sex: Female

DRUGS (4)
  1. ZIDOVUDINE [Suspect]
     Dosage: 100 MG
     Route: 048
     Dates: start: 20070901, end: 20080401
  2. EMTRICITABINE\TENOFOVIR DISOPROXIL FUMARATE [Suspect]
     Route: 048
  3. ATAZANAVIR SULFATE [Suspect]
     Dosage: 300 MG
     Route: 048
  4. RITONAVIR [Suspect]
     Indication: DRUG THERAPY ENHANCEMENT
     Dosage: 100 MG
     Route: 048
     Dates: start: 20080401

REACTIONS (2)
  - Abortion induced [Unknown]
  - Drug dispensing error [Unknown]
